FAERS Safety Report 7184061-5 (Version None)
Quarter: 2010Q4

REPORT INFORMATION
  Report Type: 
  Country: None (occurrence: None)
  Receive Date: 20101222
  Receipt Date: 20101210
  Transmission Date: 20110411
  Serious: Yes (Other)
  Sender: FDA-Public Use
  Company Number: PHHY2010US84787

PATIENT
  Sex: Female

DRUGS (21)
  1. SANDOSTATIN [Suspect]
     Dosage: 1000 MCG/ML
     Route: 058
  2. SANDOSTATIN LAR [Suspect]
     Dosage: 30 MG, QMO
  3. DEPAKOTE [Concomitant]
  4. HYZAAR [Concomitant]
  5. ZETIA [Concomitant]
  6. THYROID TAB [Concomitant]
  7. FLUOXETINE [Concomitant]
  8. BROMFENEX [Concomitant]
  9. PROTONIX [Concomitant]
  10. PRASTERONE [Concomitant]
  11. BI-EST [Concomitant]
  12. RANITIDINE [Concomitant]
  13. LORAZEPAM [Concomitant]
  14. ZOFRAN [Concomitant]
  15. ADVAIR [Concomitant]
  16. XOPENEX [Concomitant]
  17. PROVENTIL [Concomitant]
  18. MAXALT [Concomitant]
  19. OXYCODONE [Concomitant]
  20. PROVIGIL [Concomitant]
  21. IBUPROFEN [Concomitant]

REACTIONS (3)
  - CHOLELITHOTOMY [None]
  - EXPIRED DRUG ADMINISTERED [None]
  - MENTAL DISORDER [None]
